FAERS Safety Report 23630051 (Version 4)
Quarter: 2024Q1

REPORT INFORMATION
  Report Type: Spontaneous
  Country: BG (occurrence: BG)
  Receive Date: 20240314
  Receipt Date: 20240327
  Transmission Date: 20240410
  Serious: Yes (Death, Life-Threatening, Hospitalization, Other)
  Sender: FDA-Public Use
  Company Number: BG-BoehringerIngelheim-2024-BI-011846

PATIENT
  Age: 90 Year
  Sex: Male

DRUGS (1)
  1. PRADAXA [Suspect]
     Active Substance: DABIGATRAN ETEXILATE MESYLATE
     Indication: Atrial fibrillation
     Dates: end: 20231207

REACTIONS (3)
  - Cardiac failure acute [Fatal]
  - Suicide attempt [Unknown]
  - Wound haemorrhage [Recovered/Resolved]
